FAERS Safety Report 6168617-4 (Version None)
Quarter: 2009Q2

REPORT INFORMATION
  Report Type: 
  Country: None (occurrence: None)
  Receive Date: 20090427
  Receipt Date: 20090421
  Transmission Date: 20091009
  Serious: Yes (Death)
  Sender: FDA-Public Use
  Company Number: BE-ASTRAZENECA-2009AC00936

PATIENT
  Age: 40 Year
  Sex: Female
  Weight: 77.1 kg

DRUGS (8)
  1. MERONEM [Suspect]
     Indication: PNEUMONIA
     Dosage: 3 X 1GR
     Route: 042
     Dates: start: 20090311, end: 20090325
  2. DIFLUCAN [Suspect]
     Route: 042
     Dates: start: 20090304, end: 20090328
  3. OMEPRAZOLE [Concomitant]
     Indication: PROPHYLAXIS
     Route: 048
     Dates: end: 20090328
  4. VANCOMYCIN HCL [Concomitant]
     Indication: ENDOCARDITIS
     Route: 042
     Dates: start: 20090324, end: 20090328
  5. AMIKACIN [Concomitant]
  6. SOLU-MEDROL [Concomitant]
     Dosage: 2 X 20 MG
     Route: 042
  7. ASPEGIC 1000 [Concomitant]
     Indication: DRUG THERAPY
     Route: 042
     Dates: start: 20090324, end: 20090328
  8. FRAXODI [Concomitant]
     Indication: DRUG THERAPY
     Dates: start: 20090324, end: 20090328

REACTIONS (1)
  - SEPTIC EMBOLUS [None]
